FAERS Safety Report 26179713 (Version 1)
Quarter: 2025Q4

REPORT INFORMATION
  Report Type: Spontaneous
  Country: US (occurrence: US)
  Receive Date: 20251219
  Receipt Date: 20251219
  Transmission Date: 20260117
  Serious: No
  Sender: FERRING
  Company Number: US-FERRINGPH-2025FE06992

PATIENT
  Sex: Female
  Weight: 52.608 kg

DRUGS (1)
  1. REBYOTA [Suspect]
     Active Substance: DONOR HUMAN STOOL
     Indication: Product used for unknown indication
     Dosage: UNK
     Route: 065
     Dates: start: 20250929

REACTIONS (1)
  - Disease recurrence [Unknown]
